FAERS Safety Report 21006105 (Version 4)
Quarter: 2022Q3

REPORT INFORMATION
  Report Type: Report from Study
  Country: US (occurrence: US)
  Receive Date: 20220624
  Receipt Date: 20220928
  Transmission Date: 20221027
  Serious: Yes (Hospitalization)
  Sender: FDA-Public Use
  Company Number: US-NOVARTISPH-NVSC2022US143031

PATIENT
  Age: 69 Year
  Sex: Male

DRUGS (1)
  1. ENTRESTO [Suspect]
     Active Substance: SACUBITRIL\VALSARTAN
     Indication: Cardiac failure
     Dosage: 1 DOSAGE FORM, BID (24/26 MG)
     Route: 048
     Dates: start: 20220608

REACTIONS (3)
  - Fatigue [Recovering/Resolving]
  - Weight decreased [Recovering/Resolving]
  - Weight fluctuation [Unknown]

NARRATIVE: CASE EVENT DATE: 20220601
